FAERS Safety Report 5126151-4 (Version None)
Quarter: 2006Q3

REPORT INFORMATION
  Report Type: 
  Country: None (occurrence: None)
  Receive Date: 20060823
  Receipt Date: 20050802
  Transmission Date: 20061208
  Serious: Yes (Hospitalization, Other)
  Sender: FDA-Public Use
  Company Number: 2005073646

PATIENT
  Age: 33 Year
  Sex: Female

DRUGS (21)
  1. NORVASC [Suspect]
     Indication: HYPERTENSION
     Dosage: (5 MG)
     Dates: end: 20050601
  2. ZOLOFT [Suspect]
     Indication: ILL-DEFINED DISORDER
  3. LIPITOR [Suspect]
     Indication: ILL-DEFINED DISORDER
  4. ZANTAC [Suspect]
     Indication: ILL-DEFINED DISORDER
  5. ANGIOTENSIN II ANTAGONISTS (ANGIOTENSIN II ANTAGONISTS) [Concomitant]
  6. NEXIUM [Concomitant]
  7. HUMALOG [Concomitant]
  8. HUMULIN N [Concomitant]
  9. SCOPOLAMINE (HYOSCINE) [Concomitant]
  10. RHINOCORT [Concomitant]
  11. PREMPRO [Concomitant]
  12. LASIX [Concomitant]
  13. DOCUSATE (DOCUSATE) [Concomitant]
  14. DILAUDID [Concomitant]
  15. ZOFRAN [Concomitant]
  16. EPOGEN [Concomitant]
  17. ATIVAN [Concomitant]
  18. DIOVAN [Concomitant]
  19. BACLOFEN [Concomitant]
  20. ZELNORM [Concomitant]
  21. MORPHINE [Concomitant]

REACTIONS (2)
  - SOMNOLENCE [None]
  - SYNCOPE [None]
